FAERS Safety Report 25048192 (Version 1)
Quarter: 2025Q1

REPORT INFORMATION
  Report Type: Spontaneous
  Country: JP (occurrence: JP)
  Receive Date: 20250306
  Receipt Date: 20250306
  Transmission Date: 20250409
  Serious: Yes (Other)
  Sender: AMGEN
  Company Number: JP-DSJP-DS-2025-128442-

PATIENT
  Age: 76 Year
  Sex: Female

DRUGS (3)
  1. DENOSUMAB [Suspect]
     Active Substance: DENOSUMAB
     Indication: Bone lesion
     Dosage: 120 MG, ONCE EVERY 4 WK
     Route: 058
  2. DENOSUMAB [Suspect]
     Active Substance: DENOSUMAB
     Route: 065
  3. DENOSUMAB [Suspect]
     Active Substance: DENOSUMAB
     Route: 065

REACTIONS (2)
  - Exposed bone in jaw [Recovered/Resolved]
  - Tooth abscess [Unknown]
